FAERS Safety Report 7008687-4 (Version None)
Quarter: 2010Q3

REPORT INFORMATION
  Report Type: 
  Country: None (occurrence: None)
  Receive Date: 20100921
  Receipt Date: 20100902
  Transmission Date: 20110219
  Serious: Yes (Other)
  Sender: FDA-Public Use
  Company Number: GB-ACCORD-004597

PATIENT
  Age: 12 Year
  Sex: Female
  Weight: 31 kg

DRUGS (4)
  1. MYCOPHENOLATE MOFETIL [Suspect]
     Indication: IMMUNOSUPPRESSION
     Dosage: 1.00-G-2.00PER-1.0DAYS
  2. TACROLIMUS [Suspect]
     Indication: IMMUNOSUPPRESSION
     Dosage: 4.00-MG-2.00PER-1.0DAYS
  3. PREDNISONE [Suspect]
     Indication: IMMUNOSUPPRESSION
     Dosage: 25.00-MG-1.00PER-1.0DAYS
  4. EVEROLIMUS(EVEROLIMUS) [Suspect]
     Indication: IMMUNOSUPPRESSION
     Dosage: 2.75-MG-2.00PER-1.0DAYS

REACTIONS (6)
  - CANDIDIASIS [None]
  - EPIDURAL LIPOMATOSIS [None]
  - HERPES VIRUS INFECTION [None]
  - HYPERTENSION [None]
  - OFF LABEL USE [None]
  - URINARY TRACT INFECTION FUNGAL [None]
